FAERS Safety Report 16425956 (Version 3)
Quarter: 2019Q3

REPORT INFORMATION
  Report Type: Spontaneous
  Country: JP (occurrence: JP)
  Receive Date: 20190613
  Receipt Date: 20190704
  Transmission Date: 20191004
  Serious: Yes (Death, Hospitalization)
  Sender: FDA-Public Use
  Company Number: JP-ROCHE-2335482

PATIENT
  Age: 8 Decade
  Sex: Male

DRUGS (1)
  1. ACTEMRA [Suspect]
     Active Substance: TOCILIZUMAB
     Indication: CASTLEMAN^S DISEASE
     Dosage: MOST RECENT DOSE: 27/OCT/2017
     Route: 041
     Dates: start: 20150115

REACTIONS (5)
  - Pneumonia [Fatal]
  - Marrow hyperplasia [Unknown]
  - Neutrophil count decreased [Unknown]
  - Pyrexia [Unknown]
  - Myocardial ischaemia [Fatal]

NARRATIVE: CASE EVENT DATE: 20171031
